FAERS Safety Report 24428192 (Version 4)
Quarter: 2025Q1

REPORT INFORMATION
  Report Type: Report from Study
  Country: JP (occurrence: JP)
  Receive Date: 20241011
  Receipt Date: 20250205
  Transmission Date: 20250409
  Serious: Yes (Hospitalization, Other)
  Sender: MERZ
  Company Number: JP-teijin-202403791_XEO_P_1

PATIENT

DRUGS (2)
  1. XEOMIN [Suspect]
     Active Substance: INCOBOTULINUMTOXINA
     Indication: Muscle spasticity
     Dosage: 800 INTERNATIONAL UNIT
     Route: 030
     Dates: start: 20230830, end: 20230830
  2. XEOMIN [Suspect]
     Active Substance: INCOBOTULINUMTOXINA
     Indication: Muscle spasticity
     Dosage: 800 INTERNATIONAL UNIT
     Route: 030
     Dates: start: 20231220, end: 20231220

REACTIONS (2)
  - Tibia fracture [Recovered/Resolved]
  - Off label use [Unknown]

NARRATIVE: CASE EVENT DATE: 20230830
